FAERS Safety Report 4449550-2 (Version None)
Quarter: 2004Q3

REPORT INFORMATION
  Report Type: 
  Country: None (occurrence: None)
  Receive Date: 20040909
  Receipt Date: 20040823
  Transmission Date: 20050211
  Serious: Yes (Other)
  Sender: FDA-Public Use
  Company Number: USA030433500

PATIENT
  Age: 86 Year
  Sex: Female

DRUGS (9)
  1. FORTEO [Suspect]
     Indication: OSTEOPOROSIS
     Dosage: 20 UG/ 1 DAY
     Dates: start: 20030319, end: 20030402
  2. PROPOXYPHENE HCL [Suspect]
  3. ASPIRIN [Concomitant]
  4. CALCIUM [Concomitant]
  5. HYDROCHLOROTHIAZIDE [Concomitant]
  6. LIPITOR [Concomitant]
  7. NEXIUM [Concomitant]
  8. PERI-COLACE [Concomitant]
  9. VITAMINS NOS [Concomitant]

REACTIONS (6)
  - CEREBROVASCULAR ACCIDENT [None]
  - FEELING ABNORMAL [None]
  - HEADACHE [None]
  - NAUSEA [None]
  - TINNITUS [None]
  - VISION BLURRED [None]
